FAERS Safety Report 4566299-6 (Version None)
Quarter: 2005Q1

REPORT INFORMATION
  Report Type: 
  Country: None (occurrence: None)
  Receive Date: 20050126
  Receipt Date: 20050126
  Transmission Date: 20050727
  Serious: No
  Sender: FDA-Public Use
  Company Number: None

PATIENT
  Sex: Male

DRUGS (1)
  1. ROCURONIUM [Suspect]
     Indication: INDUCTION OF ANAESTHESIA
     Dates: start: 20041202, end: 20041202

REACTIONS (3)
  - ANAPHYLACTIC REACTION [None]
  - BRADYCARDIA [None]
  - HYPOTENSION [None]
